FAERS Safety Report 6103457-3 (Version None)
Quarter: 2009Q1

REPORT INFORMATION
  Report Type: 
  Country: None (occurrence: None)
  Receive Date: 20090305
  Receipt Date: 20090226
  Transmission Date: 20090719
  Serious: Yes (Death)
  Sender: FDA-Public Use
  Company Number: PHHY2009CA01089

PATIENT
  Sex: Male
  Weight: 89 kg

DRUGS (2)
  1. EXJADE [Suspect]
     Indication: IRON OVERLOAD
     Dosage: 2000 MG, QD
     Route: 048
     Dates: start: 20070401
  2. DIOVAN [Suspect]
     Dosage: UNK
     Route: 048

REACTIONS (1)
  - BONE MARROW FAILURE [None]
